FAERS Safety Report 8582118-5 (Version None)
Quarter: 2012Q3

REPORT INFORMATION
  Report Type: 
  Country: None (occurrence: None)
  Receive Date: 20120809
  Receipt Date: 20120808
  Transmission Date: 20120928
  Serious: Yes (Hospitalization)
  Sender: FDA-Public Use
  Company Number: PHHO2012US011286

PATIENT
  Sex: Male
  Weight: 61.224 kg

DRUGS (15)
  1. FLUTICASONE PROPIONATE [Concomitant]
     Dosage: 50 MG, ONE SPRAY EACH NOSSTRIL
     Dates: start: 20120525
  2. LEVOTHYROXINE SODIUM [Concomitant]
     Dosage: 50 MG, QD
     Route: 048
     Dates: start: 20120413
  3. SIMVASTATIN [Suspect]
     Dosage: 40 MG, QD
     Route: 048
     Dates: start: 20120413, end: 20120426
  4. ILARIS [Suspect]
     Indication: CARDIOVASCULAR EVENT PROPHYLAXIS
     Dosage: 150 MG, UNK
     Route: 058
     Dates: start: 20120418
  5. ASPIRIN [Concomitant]
     Indication: PROPHYLAXIS
     Dosage: 81 MG, QD
     Route: 048
     Dates: start: 19950101
  6. CARVEDILOL [Concomitant]
     Dosage: 12.5 MG, QD
     Route: 048
     Dates: start: 20090101
  7. LISINOPRIL [Concomitant]
     Dosage: 5 MG, QD
     Route: 048
     Dates: start: 20100101
  8. PACERONE [Concomitant]
     Dosage: 200 MG, QD
     Route: 048
     Dates: start: 20030101
  9. CENTRUM [Concomitant]
     Indication: SUPPLEMENTATION THERAPY
     Dosage: 1 DF, QD
     Route: 048
     Dates: start: 19920101
  10. LEVOTHYROXINE SODIUM [Concomitant]
     Dosage: 25 MG, QD
     Route: 048
     Dates: start: 20100101, end: 20120412
  11. AMOXICILLIN [Concomitant]
     Dosage: 500 MG, TID
     Route: 048
     Dates: start: 20120525, end: 20120604
  12. FLUTICASONE PROPIONATE [Concomitant]
     Dosage: 1 DF (250/50 MG), BID
     Dates: start: 20120619
  13. METFORMIN HYDROCHLORIDE [Concomitant]
     Dosage: 500 MG, BID
     Route: 048
  14. MULTI-VITAMINS [Concomitant]
  15. LOVASTATIN [Concomitant]
     Dosage: 20 MG, QD
     Route: 048
     Dates: start: 20010101, end: 20120412

REACTIONS (1)
  - RHABDOMYOLYSIS [None]
